FAERS Safety Report 8990592 (Version 2)
Quarter: 2013Q1

REPORT INFORMATION
  Report Type: Other
  Country: US (occurrence: US)
  Receive Date: 20121228
  Receipt Date: 20130107
  Transmission Date: 20140127
  Serious: Yes (Death)
  Sender: FDA-Public Use
  Company Number: US-SHIRE-ALL1-2012-06556

PATIENT
  Age: 11 Year
  Sex: Male

DRUGS (1)
  1. ELAPRASE [Suspect]
     Indication: MUCOPOLYSACCHARIDOSIS II
     Dosage: 18 MG (3 VIALS), 1X/WEEK
     Route: 041
     Dates: start: 20070201

REACTIONS (3)
  - Death [Fatal]
  - Cough [Unknown]
  - Skin discolouration [Unknown]
